FAERS Safety Report 8967603 (Version 1)
Quarter: 2012Q4

REPORT INFORMATION
  Report Type: 
  Country: US (occurrence: US)
  Receive Date: 20121214
  Receipt Date: 20121214
  Transmission Date: 20130627
  Serious: Yes (Hospitalization, Other)
  Sender: FDA-Public Use
  Company Number: US-PFIZER INC-HQWYE978813FEB04

PATIENT
  Age: 60 Year
  Sex: Female

DRUGS (5)
  1. ADVIL [Suspect]
     Indication: PAIN
     Dosage: 800 mg, 3x/day
     Route: 048
  2. IBUPROFEN [Suspect]
     Indication: PAIN
     Dosage: 800 mg, 3x/day
  3. CEFTRIAXONE [Suspect]
     Indication: PRODUCT USED FOR UNKNOWN INDICATION
     Dosage: UNK
  4. CAPTOPRIL [Concomitant]
     Dosage: 75 mg, 2x/day
     Route: 048
  5. HYDROCHLOROTHIAZIDE [Concomitant]
     Dosage: 25 mg, 1x/day
     Route: 048

REACTIONS (16)
  - Overdose [Recovered/Resolved]
  - Renal function test abnormal [Recovered/Resolved]
  - Urinary tract infection [Recovered/Resolved]
  - Pneumococcal sepsis [Recovered/Resolved]
  - Anaemia [Recovered/Resolved]
  - Coombs test positive [Unknown]
  - Pneumonia streptococcal [Recovered/Resolved]
  - Cardiac murmur [Recovered/Resolved]
  - Pyrexia [Recovered/Resolved]
  - Pain [Unknown]
  - Paraesthesia [Unknown]
  - Asthenia [Unknown]
  - Drug ineffective [Unknown]
  - Blood creatinine increased [Recovered/Resolved]
  - Blood urea increased [Recovered/Resolved]
  - Sepsis [Recovered/Resolved]
